FAERS Safety Report 6046213-7 (Version None)
Quarter: 2009Q1

REPORT INFORMATION
  Report Type: 
  Country: None (occurrence: None)
  Receive Date: 20090122
  Receipt Date: 20090112
  Transmission Date: 20090719
  Serious: Yes (Other)
  Sender: FDA-Public Use
  Company Number: RU-PFIZER INC-2009154447

PATIENT

DRUGS (3)
  1. QUINAPRIL HCL [Suspect]
     Indication: HYPERTENSION
     Dosage: 10 MG, 1X/DAY
     Route: 048
     Dates: start: 20070101, end: 20090101
  2. QUINAPRIL HCL [Suspect]
     Dosage: 20 MG, 1X/DAY
     Route: 048
     Dates: start: 20090101, end: 20090101
  3. QUINAPRIL HCL [Suspect]
     Dosage: 20 MG, 2X/DAY
     Route: 048
     Dates: start: 20090101

REACTIONS (1)
  - BLOOD PRESSURE INCREASED [None]
